FAERS Safety Report 7488716-4 (Version None)
Quarter: 2011Q2

REPORT INFORMATION
  Report Type: 
  Country: None (occurrence: None)
  Receive Date: 20110518
  Receipt Date: 20110509
  Transmission Date: 20111010
  Serious: Yes (Other)
  Sender: FDA-Public Use
  Company Number: US-ASTRAZENECA-2011SE27332

PATIENT
  Age: 80 Year
  Sex: Male

DRUGS (3)
  1. CRESTOR [Suspect]
     Indication: BLOOD CHOLESTEROL ABNORMAL
     Route: 048
     Dates: start: 20090101
  2. COUMADIN [Concomitant]
  3. GLUCOSAMINE AND CHONDROITIN [Concomitant]

REACTIONS (3)
  - ATRIOVENTRICULAR BLOCK COMPLETE [None]
  - DERMATITIS [None]
  - CELLULITIS [None]
